FAERS Safety Report 7034579-0 (Version None)
Quarter: 2010Q4

REPORT INFORMATION
  Report Type: 
  Country: None (occurrence: None)
  Receive Date: 20101008
  Receipt Date: 20100928
  Transmission Date: 20110411
  Serious: Yes (Hospitalization, Other)
  Sender: FDA-Public Use
  Company Number: JP-JNJFOC-20101000236

PATIENT
  Sex: Female
  Weight: 63 kg

DRUGS (26)
  1. REMICADE [Suspect]
     Indication: BEHCET'S SYNDROME
     Dosage: TOTAL OF 18 INFUSIONS
     Route: 042
  2. RINDERON [Concomitant]
     Indication: BEHCET'S SYNDROME
     Dosage: VARIOUS DROPS TO EACH EYE
  3. HYPEN [Concomitant]
     Indication: BEHCET'S SYNDROME
     Route: 048
  4. AZUNOL [Concomitant]
     Indication: BEHCET'S SYNDROME
  5. PREDNISONE [Concomitant]
     Indication: PROPHYLAXIS
     Route: 042
  6. TIMOPTOL [Concomitant]
     Indication: GLAUCOMA
  7. KENALOG [Concomitant]
     Indication: BEHCET'S SYNDROME
  8. ATARAX [Concomitant]
     Indication: SINUSITIS
     Route: 048
  9. RIBOFLAVIN TAB [Concomitant]
     Indication: BEHCET'S SYNDROME
     Route: 048
  10. PYDOXAL [Concomitant]
     Indication: BEHCET'S SYNDROME
     Route: 048
  11. ZYRTEC [Concomitant]
     Indication: SINUSITIS
     Route: 048
  12. DEXCHLORPHENIRAMINE MALEATE [Concomitant]
     Indication: PROPHYLAXIS
     Route: 048
  13. COLCHICINE [Concomitant]
     Indication: BEHCET'S SYNDROME
     Route: 048
  14. COLCHICINE [Concomitant]
     Route: 048
  15. COLCHICINE [Concomitant]
     Route: 048
  16. MYSER [Concomitant]
     Indication: BEHCET'S SYNDROME
  17. RINDERON-VG [Concomitant]
     Indication: BEHCET'S SYNDROME
  18. SELBEX [Concomitant]
     Indication: GASTRITIS
     Route: 048
  19. DASEN [Concomitant]
     Indication: SINUSITIS
     Route: 048
  20. XALATAN [Concomitant]
     Indication: GLAUCOMA
  21. HYALEIN [Concomitant]
     Indication: KERATITIS
  22. RIVOTRIL [Concomitant]
     Indication: KERATITIS
  23. METHYCOBAL [Concomitant]
     Indication: KERATITIS
  24. HIRUDOID CREAM [Concomitant]
     Indication: BEHCET'S SYNDROME
  25. NEORAL [Concomitant]
     Indication: BEHCET'S SYNDROME
     Route: 048
  26. NEORAL [Concomitant]
     Route: 048

REACTIONS (5)
  - ANGIOPATHY [None]
  - CONVULSION [None]
  - GASTROENTERITIS [None]
  - INFUSION RELATED REACTION [None]
  - UPPER RESPIRATORY TRACT INFLAMMATION [None]
